FAERS Safety Report 18132399 (Version 1)
Quarter: 2020Q3

REPORT INFORMATION
  Report Type: Spontaneous
  Country: US (occurrence: US)
  Receive Date: 20200811
  Receipt Date: 20200811
  Transmission Date: 20201103
  Serious: Yes (Hospitalization, Other)
  Sender: FDA-Public Use
  Company Number: US-ALEXION-A202011379

PATIENT
  Sex: Female

DRUGS (3)
  1. ULTOMIRIS [Suspect]
     Active Substance: RAVULIZUMAB-CWVZ
     Indication: PAROXYSMAL NOCTURNAL HAEMOGLOBINURIA
     Dosage: UNK
     Route: 042
     Dates: start: 20200521
  2. SOLIRIS [Suspect]
     Active Substance: ECULIZUMAB
     Indication: HAEMOLYSIS
     Dosage: UNK, SINGLE
     Route: 065
     Dates: start: 20200731, end: 20200731
  3. SOLIRIS [Suspect]
     Active Substance: ECULIZUMAB
     Indication: OFF LABEL USE

REACTIONS (8)
  - Pneumatosis intestinalis [Unknown]
  - Off label use [Recovered/Resolved]
  - Colitis ulcerative [Unknown]
  - Rectal haemorrhage [Recovering/Resolving]
  - Dizziness [Unknown]
  - Condition aggravated [Recovering/Resolving]
  - Intestinal haemorrhage [Recovering/Resolving]
  - Haemolysis [Unknown]

NARRATIVE: CASE EVENT DATE: 202007
